FAERS Safety Report 6220359-2 (Version None)
Quarter: 2009Q2

REPORT INFORMATION
  Report Type: 
  Country: None (occurrence: None)
  Receive Date: 20090610
  Receipt Date: 20090601
  Transmission Date: 20091009
  Serious: Yes (Hospitalization, Other)
  Sender: FDA-Public Use
  Company Number: JP-PFIZER INC-2009215614

PATIENT
  Age: 77 Year

DRUGS (7)
  1. NORVASC [Suspect]
     Dosage: 5 MG, 1X/DAY
     Route: 048
     Dates: start: 20080919, end: 20090523
  2. DIOVANE [Concomitant]
     Dosage: UNK
     Route: 048
     Dates: start: 20080919
  3. WARFARIN [Concomitant]
     Dosage: UNK
     Route: 048
     Dates: start: 20090516
  4. HEPARIN [Concomitant]
     Dosage: UNK
     Route: 048
     Dates: start: 20090515
  5. FLOMOX [Concomitant]
     Dosage: UNK
     Route: 048
     Dates: start: 20090512
  6. LOXONIN [Concomitant]
     Route: 048
     Dates: start: 20090512
  7. MUCOSTA [Concomitant]
     Dosage: UNK
     Route: 048
     Dates: start: 20090512

REACTIONS (2)
  - ALOPECIA [None]
  - LUNG NEOPLASM MALIGNANT [None]
